FAERS Safety Report 7542792-9 (Version None)
Quarter: 2011Q2

REPORT INFORMATION
  Report Type: 
  Country: None (occurrence: None)
  Receive Date: 20110606
  Receipt Date: 20110523
  Transmission Date: 20111010
  Serious: Yes (Hospitalization, Other)
  Sender: FDA-Public Use
  Company Number: 926885

PATIENT
  Age: 59 Year
  Sex: Female

DRUGS (12)
  1. METHOTREXATE [Suspect]
     Indication: PRODUCT USED FOR UNKNOWN INDICATION
  2. NEXIUM [Concomitant]
  3. AMITRIPTYLINE HCL [Concomitant]
  4. METFORMIN HCL [Concomitant]
  5. (ABATACEPT) [Suspect]
     Indication: RHEUMATOID ARTHRITIS
     Dosage: 750MG, EVERY 4 WEEKS, INTRAVENOUS
     Route: 042
     Dates: start: 20080324, end: 20110411
  6. CRESTOR [Concomitant]
  7. ACTOS [Concomitant]
  8. FOLIC ACID [Concomitant]
  9. PREDNISONE [Concomitant]
  10. SYNTHROID [Concomitant]
  11. COZAAR [Concomitant]
  12. VENTOLIN HFA [Concomitant]

REACTIONS (6)
  - EYE INFECTION [None]
  - DIZZINESS [None]
  - ASTHENIA [None]
  - DIARRHOEA [None]
  - GASTROENTERITIS VIRAL [None]
  - VOMITING [None]
